FAERS Safety Report 19024226 (Version 1)
Quarter: 2021Q1

REPORT INFORMATION
  Report Type: Spontaneous
  Country: GB (occurrence: GB)
  Receive Date: 20210318
  Receipt Date: 20210318
  Transmission Date: 20210420
  Serious: Yes (Hospitalization, Disabling, Other)
  Sender: FDA-Public Use
  Company Number: GB-TEVA-2021-GB-1889603

PATIENT
  Sex: Male

DRUGS (2)
  1. PAROXETINE. [Concomitant]
     Active Substance: PAROXETINE
     Indication: DEPRESSION
  2. PROPRANOLOL [Suspect]
     Active Substance: PROPRANOLOL HYDROCHLORIDE
     Indication: ANXIETY
     Dosage: 120 MILLIGRAM DAILY; 40 MG
     Dates: end: 2007

REACTIONS (25)
  - Peripheral coldness [Unknown]
  - Accidental overdose [Unknown]
  - Palpitations [Unknown]
  - Mood altered [Unknown]
  - Dry eye [Unknown]
  - Sedation [Unknown]
  - Psychotic disorder [Unknown]
  - Seizure [Not Recovered/Not Resolved]
  - Feeling abnormal [Unknown]
  - Paraesthesia [Unknown]
  - Aggression [Unknown]
  - Muscle spasms [Unknown]
  - Bundle branch block right [Unknown]
  - Amnesia [Unknown]
  - Hallucination, auditory [Unknown]
  - Chest pain [Unknown]
  - Dizziness [Unknown]
  - Petechiae [Unknown]
  - Sinus bradycardia [Unknown]
  - Dizziness postural [Unknown]
  - Asthenia [Unknown]
  - Pruritus [Unknown]
  - Confusional state [Unknown]
  - Visual impairment [Unknown]
  - Tinnitus [Unknown]

NARRATIVE: CASE EVENT DATE: 2020
